FAERS Safety Report 5579532-9 (Version None)
Quarter: 2008Q1

REPORT INFORMATION
  Report Type: 
  Country: None (occurrence: None)
  Receive Date: 20080102
  Receipt Date: 20071220
  Transmission Date: 20080703
  Serious: Yes (Other)
  Sender: FDA-Public Use
  Company Number: US-ELI_LILLY_AND_COMPANY-US200712000724

PATIENT
  Sex: Male
  Weight: 72.109 kg

DRUGS (2)
  1. CYMBALTA [Suspect]
     Dosage: 60 MG, DAILY (1/D)
  2. FLOMAX [Concomitant]

REACTIONS (1)
  - CEREBROVASCULAR ACCIDENT [None]
